FAERS Safety Report 10991901 (Version 2)
Quarter: 2015Q2

REPORT INFORMATION
  Report Type: Report from Study
  Country: US (occurrence: US)
  Receive Date: 20150406
  Receipt Date: 20150416
  Transmission Date: 20150821
  Serious: Yes (Disabling, Other)
  Sender: FDA-Public Use
  Company Number: US-ACTELION-A-NJ2015-115582

PATIENT
  Age: 69 Year
  Sex: Male

DRUGS (5)
  1. TRACLEER [Suspect]
     Active Substance: BOSENTAN\BOSENTAN MONOHYDRATE
     Indication: PULMONARY HYPERTENSION
     Dosage: 125 UNK, BID
     Route: 048
     Dates: start: 2005, end: 20150215
  2. COUMADIN [Concomitant]
     Active Substance: WARFARIN SODIUM
  3. TREPROSTINIL DIOLAMIN [Concomitant]
     Active Substance: TREPROSTINIL DIOLAMINE
  4. OXYGEN. [Concomitant]
     Active Substance: OXYGEN
  5. REVATIO [Concomitant]
     Active Substance: SILDENAFIL CITRATE

REACTIONS (4)
  - Haematuria [Unknown]
  - Blood creatinine increased [Unknown]
  - Renal failure [Unknown]
  - Pulmonary renal syndrome [Unknown]

NARRATIVE: CASE EVENT DATE: 20141015
